FAERS Safety Report 10586107 (Version 1)
Quarter: 2014Q4

REPORT INFORMATION
  Report Type: Spontaneous
  Country: JP (occurrence: JP)
  Receive Date: 20141115
  Receipt Date: 20141115
  Transmission Date: 20150529
  Serious: Yes (Life-Threatening, Other)
  Sender: FDA-Public Use
  Company Number: JP-ASTRAZENECA-2014SE86182

PATIENT
  Age: 42 Year
  Sex: Female
  Weight: 57 kg

DRUGS (2)
  1. SEROQUEL [Suspect]
     Active Substance: QUETIAPINE FUMARATE
     Indication: SUICIDE ATTEMPT
     Route: 048
     Dates: start: 20141105, end: 20141105
  2. PSYCHOTROPIC AGENT [Concomitant]
     Indication: SUICIDE ATTEMPT
     Route: 048
     Dates: start: 20141105

REACTIONS (3)
  - Suicide attempt [Unknown]
  - Coma [Unknown]
  - Intentional product misuse [Unknown]

NARRATIVE: CASE EVENT DATE: 20141105
